FAERS Safety Report 23752944 (Version 3)
Quarter: 2024Q2

REPORT INFORMATION
  Report Type: Report from Study
  Country: US (occurrence: US)
  Receive Date: 20240417
  Receipt Date: 20240419
  Transmission Date: 20240716
  Serious: Yes (Death, Hospitalization)
  Sender: FDA-Public Use
  Company Number: US-ABBVIE-5722414

PATIENT
  Sex: Female
  Weight: 43.998 kg

DRUGS (3)
  1. CREON [Suspect]
     Active Substance: PANCRELIPASE AMYLASE\PANCRELIPASE LIPASE\PANCRELIPASE PROTEASE
     Indication: Pancreatic carcinoma
     Dosage: FORM STRENGTH: 24000 UNIT?FREQUENCY TEXT: 2CAPSULES WITH MEALS,1CAPSULE WITH SNACK
     Route: 048
     Dates: start: 202302
  2. CREON [Suspect]
     Active Substance: PANCRELIPASE AMYLASE\PANCRELIPASE LIPASE\PANCRELIPASE PROTEASE
     Indication: Pancreatic carcinoma
     Dosage: 1 CAPSULE WITH SNACKS
     Route: 048
  3. CREON [Suspect]
     Active Substance: PANCRELIPASE AMYLASE\PANCRELIPASE LIPASE\PANCRELIPASE PROTEASE
     Indication: Pancreatic carcinoma
     Dosage: TAKE2 CAPSULE BY MOUTH THREE TIMES DAILY
     Route: 048

REACTIONS (3)
  - Pancreatic carcinoma stage IV [Fatal]
  - Ascites [Not Recovered/Not Resolved]
  - Haemoglobin decreased [Recovered/Resolved]

NARRATIVE: CASE EVENT DATE: 20240101
